FAERS Safety Report 5417730-5 (Version None)
Quarter: 2007Q3

REPORT INFORMATION
  Report Type: 
  Country: None (occurrence: None)
  Receive Date: 20070815
  Receipt Date: 20070815
  Transmission Date: 20080115
  Serious: Yes (Hospitalization)
  Sender: FDA-Public Use
  Company Number: None

PATIENT
  Sex: Male
  Weight: 94.8018 kg

DRUGS (8)
  1. COUMADIN [Suspect]
     Indication: ATRIAL FLUTTER
     Dosage: 4 MG PO QD (THERAPY DATES: PRIOR TO ADMISSION)
     Route: 048
  2. ASPIRIN [Suspect]
     Indication: ATRIAL FLUTTER
     Dosage: 81MG PO QD  (THERAPY DATES: PRIOR TO ADMISSION)
     Route: 048
  3. COREG [Concomitant]
  4. GLUCOTROL [Concomitant]
  5. INSULIN [Concomitant]
  6. LOPID [Concomitant]
  7. FOLIC ACID [Concomitant]
  8. DIGOXIN [Concomitant]

REACTIONS (1)
  - GASTROINTESTINAL ULCER HAEMORRHAGE [None]
